FAERS Safety Report 6574342-8 (Version None)
Quarter: 2010Q1

REPORT INFORMATION
  Report Type: 
  Country: None (occurrence: None)
  Receive Date: 20100201
  Receipt Date: 20100201
  Transmission Date: 20100710
  Serious: Yes (Hospitalization)
  Sender: FDA-Public Use
  Company Number: 2010SP003563

PATIENT
  Age: 78 Year
  Sex: Female

DRUGS (4)
  1. DEXAMETHASONE [Suspect]
     Indication: DIFFUSE LARGE B-CELL LYMPHOMA
  2. RITUXIMAB (RITUXIMAB) [Suspect]
     Indication: DIFFUSE LARGE B-CELL LYMPHOMA
  3. CYCLOPHOSPHAMIDE [Suspect]
     Indication: DIFFUSE LARGE B-CELL LYMPHOMA
  4. DOXORUBICIN HCL [Concomitant]
     Indication: DIFFUSE LARGE B-CELL LYMPHOMA

REACTIONS (4)
  - BONE MARROW FAILURE [None]
  - DEEP VEIN THROMBOSIS [None]
  - DIARRHOEA [None]
  - GENERAL PHYSICAL HEALTH DETERIORATION [None]
